FAERS Safety Report 16070542 (Version 1)
Quarter: 2019Q1

REPORT INFORMATION
  Report Type: Spontaneous
  Country: US (occurrence: US)
  Receive Date: 20190314
  Receipt Date: 20190314
  Transmission Date: 20190418
  Serious: Yes (Hospitalization)
  Sender: FDA-Public Use
  Company Number: US-B.I. PHARMACEUTICALS,INC./RIDGEFIELD-2019-BI-010404

PATIENT
  Sex: Male

DRUGS (1)
  1. OFEV [Suspect]
     Active Substance: NINTEDANIB
     Indication: IDIOPATHIC PULMONARY FIBROSIS
     Dosage: BID;  ? ADMINISTRATION CORRECT? NR(NOT REPORTED) ?ACTION(S) TAKEN WITH PRODUCT: DOSE NOT CHANGED
     Route: 065
     Dates: start: 20171128

REACTIONS (7)
  - Pneumonia [Not Recovered/Not Resolved]
  - Oxygen saturation decreased [Not Recovered/Not Resolved]
  - Blood potassium increased [Not Recovered/Not Resolved]
  - Balance disorder [Not Recovered/Not Resolved]
  - Tachycardia [Not Recovered/Not Resolved]
  - Fluid retention [Not Recovered/Not Resolved]
  - Blood creatinine increased [Not Recovered/Not Resolved]

NARRATIVE: CASE EVENT DATE: 20190305
